FAERS Safety Report 7890617 (Version 2)
Quarter: 2012Q4

REPORT INFORMATION
  Report Type: 
  Country: US (occurrence: US)
  Receive Date: 20110408
  Receipt Date: 20121116
  Transmission Date: 20130627
  Serious: No
  Sender: FDA-Public Use
  Company Number: US-JNJFOC-20110311862

PATIENT
  Sex: Male
  Weight: 90.72 kg

DRUGS (12)
  1. SANDOZ FENTANYL TRANSDERMAL SYSTEM [Suspect]
     Indication: NECK PAIN
     Route: 062
     Dates: start: 2010
  2. SANDOZ FENTANYL TRANSDERMAL SYSTEM [Suspect]
     Indication: NECK PAIN
     Dosage: one 100 ug/hr and one 50 ug/hr patch
     Route: 062
     Dates: start: 2010, end: 2011
  3. SANDOZ FENTANYL TRANSDERMAL SYSTEM [Suspect]
     Indication: BACK PAIN
     Route: 062
     Dates: start: 2010
  4. SANDOZ FENTANYL TRANSDERMAL SYSTEM [Suspect]
     Indication: BACK PAIN
     Dosage: one 100 ug/hr and one 50 ug/hr patch
     Route: 062
     Dates: start: 2010, end: 2011
  5. FENTANYL [Suspect]
     Indication: NECK PAIN
     Dosage: one 100 ug/hr patch and one 50 ug/hr patch
     Route: 062
     Dates: end: 2010
  6. FENTANYL [Suspect]
     Indication: BACK PAIN
     Dosage: one 100 ug/hr patch and one 50 ug/hr patch
     Route: 062
     Dates: end: 2010
  7. UNSPECIFIED FENTANYL TRANSDERMAL SYSTEM [Suspect]
     Indication: BACK PAIN
     Route: 062
     Dates: start: 2010, end: 2010
  8. UNSPECIFIED FENTANYL TRANSDERMAL SYSTEM [Suspect]
     Indication: PAIN
     Route: 062
     Dates: end: 2010
  9. DURAGESIC [Suspect]
     Indication: PAIN
     Route: 062
     Dates: start: 2008
  10. BENAZEPRIL [Concomitant]
     Indication: BLOOD PRESSURE
     Route: 048
  11. UNKNOWN MEDICATION [Concomitant]
     Indication: BLOOD CHOLESTEROL
     Route: 048
  12. OXYCODONE [Concomitant]
     Indication: PAIN
     Route: 048

REACTIONS (9)
  - Product quality issue [Unknown]
  - Wrong technique in drug usage process [Recovered/Resolved]
  - Drug screen negative [Not Recovered/Not Resolved]
  - Drug effect decreased [Not Recovered/Not Resolved]
  - Wrong technique in drug usage process [Not Recovered/Not Resolved]
  - Wrong technique in drug usage process [Not Recovered/Not Resolved]
  - Hyperhidrosis [Not Recovered/Not Resolved]
  - Haemoglobin increased [Not Recovered/Not Resolved]
  - Drug screen positive [Recovered/Resolved]
